FAERS Safety Report 6516237-1 (Version None)
Quarter: 2009Q4

REPORT INFORMATION
  Report Type: 
  Country: None (occurrence: None)
  Receive Date: 20091223
  Receipt Date: 20091221
  Transmission Date: 20100525
  Serious: Yes (Death, Hospitalization)
  Sender: FDA-Public Use
  Company Number: FR-B.I. PHARMACEUTICALS,INC./RIDGEFIELD-2009-FF-00876FF

PATIENT
  Sex: Male

DRUGS (12)
  1. SPIRIVA [Suspect]
     Dosage: 36 MCG
     Route: 055
     Dates: end: 20080514
  2. ALDACTONE [Concomitant]
     Dosage: 25 MG
     Route: 048
     Dates: start: 20080422, end: 20080514
  3. COVERSYL [Concomitant]
     Dosage: 4 MG
     Route: 048
     Dates: end: 20080514
  4. ALLOPURINOL [Concomitant]
     Dosage: 300 MG
     Route: 048
     Dates: end: 20080514
  5. KALEORID [Concomitant]
     Dosage: 1000 MG
     Route: 048
     Dates: end: 20080514
  6. LASIX [Concomitant]
     Dosage: 500 MG
     Route: 048
     Dates: end: 20080514
  7. PULMICORT [Concomitant]
     Route: 055
     Dates: end: 20080514
  8. TAHOR [Concomitant]
     Dosage: 40 MG
     Route: 048
  9. KREDEX [Concomitant]
     Dosage: 25 MG
     Route: 048
  10. INIPOMP [Concomitant]
     Dosage: 20 MG
     Route: 048
  11. LEVOTHYROXINE SODIUM [Concomitant]
     Dosage: 25 MCG
     Route: 048
  12. PREVISCAN [Concomitant]
     Dosage: 3/4 TA 2 DAYS EVERY 3 DAYS AND 1/2 TA 1 DAY EVERY 3 DAYS
     Route: 048

REACTIONS (2)
  - HYPERKALAEMIA [None]
  - RENAL FAILURE [None]
